FAERS Safety Report 5324337-7 (Version None)
Quarter: 2007Q2

REPORT INFORMATION
  Report Type: 
  Country: None (occurrence: None)
  Receive Date: 20070509
  Receipt Date: 20070427
  Transmission Date: 20071010
  Serious: Yes (Disabling)
  Sender: FDA-Public Use
  Company Number: 6020693

PATIENT
  Age: 37 Year
  Sex: Female

DRUGS (2)
  1. LEVOTHYROXINE SODIUM [Suspect]
     Indication: THYROIDECTOMY
     Dosage: 200 MG (200 MCG, 1 D); ORAL
     Route: 048
     Dates: start: 19800101, end: 20040101
  2. MOPRAL (CAPSULE) (OMEPRAZOLE) [Concomitant]

REACTIONS (13)
  - ALOPECIA [None]
  - BLOOD PRESSURE SYSTOLIC INCREASED [None]
  - BLOOD THYROID STIMULATING HORMONE INCREASED [None]
  - CHEST PAIN [None]
  - CONSTIPATION [None]
  - DRUG INEFFECTIVE [None]
  - GLUCOSE TOLERANCE IMPAIRED [None]
  - HYPERINSULINISM [None]
  - NODULE [None]
  - SKIN STRIAE [None]
  - THYROXINE FREE DECREASED [None]
  - THYROXINE FREE INCREASED [None]
  - TRI-IODOTHYRONINE FREE DECREASED [None]
